FAERS Safety Report 7480446-8 (Version None)
Quarter: 2011Q2

REPORT INFORMATION
  Report Type: 
  Country: None (occurrence: None)
  Receive Date: 20110516
  Receipt Date: 20110502
  Transmission Date: 20111010
  Serious: Yes (Hospitalization, Other)
  Sender: FDA-Public Use
  Company Number: CA-ELI_LILLY_AND_COMPANY-CA201101003031

PATIENT
  Age: 78 Year
  Sex: Female

DRUGS (13)
  1. CITALOPRAM HYDROBROMIDE [Concomitant]
  2. ESTRACE [Concomitant]
  3. FORTEO [Suspect]
     Dosage: 20 UG, DAILY (1/D)
     Route: 058
     Dates: start: 20100801
  4. LIPITOR [Concomitant]
  5. SELEGILINE [Concomitant]
  6. ASPIRIN [Concomitant]
     Dosage: UNK, UNKNOWN
     Route: 065
  7. PROGESTERONE [Concomitant]
     Dosage: UNK, UNKNOWN
     Route: 065
  8. FORTEO [Suspect]
     Indication: OSTEOPOROSIS
     Dosage: 20 MG, DAILY (1/D)
     Route: 058
     Dates: start: 20100224, end: 20100701
  9. NEXIUM [Concomitant]
  10. MICARDIS [Concomitant]
  11. AMLODIPINE BESYLATE [Concomitant]
  12. ATIVAN [Concomitant]
  13. AMANTADINE HCL [Concomitant]

REACTIONS (1)
  - TRANSIENT ISCHAEMIC ATTACK [None]
